FAERS Safety Report 4599912-8 (Version None)
Quarter: 2005Q1

REPORT INFORMATION
  Report Type: 
  Country: None (occurrence: None)
  Receive Date: 20050303
  Receipt Date: 20050211
  Transmission Date: 20050727
  Serious: Yes (Life-Threatening, Hospitalization, Disabling, Other)
  Sender: FDA-Public Use
  Company Number: US_0501111259

PATIENT
  Age: 53 Year
  Sex: Male
  Weight: 65 kg

DRUGS (10)
  1. XIGRIS (DROTRECOGINA ALFA (ACTIVATED)) [Suspect]
     Indication: SEPSIS
     Dosage: 24 UG/KG/HR/36 HOURS
     Dates: start: 20050117, end: 20050119
  2. OMEPRAZOLE (OMEPRAZOLE RATIOPHARM) [Concomitant]
  3. CEFTRIAXONE [Concomitant]
  4. METRONIDAZOLE [Concomitant]
  5. CHLORAMPHENICOL [Concomitant]
  6. ALBUMIN NOS [Concomitant]
  7. HYDROCORTISONE [Concomitant]
  8. VITAMIN K [Concomitant]
  9. CAPTOPRIL [Concomitant]
  10. TPN [Concomitant]

REACTIONS (11)
  - ACTIVATED PARTIAL THROMBOPLASTIN TIME PROLONGED [None]
  - BLOOD CALCIUM INCREASED [None]
  - BLOOD SODIUM INCREASED [None]
  - BRAIN DEATH [None]
  - BRAIN OEDEMA [None]
  - BRAIN SCAN ABNORMAL [None]
  - CEREBRAL HAEMORRHAGE [None]
  - HAEMOGLOBIN DECREASED [None]
  - INTERNATIONAL NORMALISED RATIO DECREASED [None]
  - NERVOUS SYSTEM DISORDER [None]
  - PROTHROMBIN TIME PROLONGED [None]
